FAERS Safety Report 18910483 (Version 1)
Quarter: 2021Q1

REPORT INFORMATION
  Report Type: Spontaneous
  Country: US (occurrence: US)
  Receive Date: 20210218
  Receipt Date: 20210218
  Transmission Date: 20210420
  Serious: No
  Sender: FDA-Public Use
  Company Number: US-BAYER-2021-062176

PATIENT
  Age: 67 Year
  Sex: Female

DRUGS (3)
  1. NATRIUM BICARBONATE ORION [Concomitant]
  2. MIRALAX [Suspect]
     Active Substance: POLYETHYLENE GLYCOL 3350
     Indication: CONSTIPATION
  3. MIRALAX [Suspect]
     Active Substance: POLYETHYLENE GLYCOL 3350
     Indication: CONSTIPATION

REACTIONS (5)
  - Malaise [Unknown]
  - Electrolyte imbalance [Unknown]
  - Dizziness [Unknown]
  - Drug ineffective [Unknown]
  - Product use in unapproved indication [Unknown]
